FAERS Safety Report 22279488 (Version 1)
Quarter: 2023Q2

REPORT INFORMATION
  Report Type: Spontaneous
  Country: US (occurrence: US)
  Receive Date: 20230503
  Receipt Date: 20230503
  Transmission Date: 20230721
  Serious: No
  Sender: FDA-Public Use
  Company Number: US-PHARMING-PHAUS2023000302

PATIENT

DRUGS (6)
  1. JOENJA [Interacting]
     Active Substance: LENIOLISIB PHOSPHATE
     Indication: Activated PI3 kinase delta syndrome
     Dosage: 70 MILLIGRAM, BID, APPROXIMATELY 12 HOURS APART WITH OR WITHOUT FOOD
     Route: 048
  2. ATORVASTATIN CALCIUM [Interacting]
     Active Substance: ATORVASTATIN CALCIUM
     Indication: Product used for unknown indication
     Dosage: 20 MILLIGRAM
  3. CETIRIZINE                         /00884302/ [Concomitant]
     Indication: Product used for unknown indication
     Dosage: 10 MILLIGRAM
  4. HIZENTRA                           /00025201/ [Concomitant]
     Indication: Product used for unknown indication
  5. LISINOPRIL                         /00894002/ [Concomitant]
     Indication: Product used for unknown indication
     Dosage: 2.5 MILLIGRAM
  6. PREDNISONE [Concomitant]
     Active Substance: PREDNISONE
     Indication: Product used for unknown indication
     Dosage: 3 MILLIGRAM

REACTIONS (1)
  - Drug interaction [Not Recovered/Not Resolved]
